FAERS Safety Report 7273896-6 (Version None)
Quarter: 2011Q1

REPORT INFORMATION
  Report Type: 
  Country: None (occurrence: None)
  Receive Date: 20110203
  Receipt Date: 20110127
  Transmission Date: 20110831
  Serious: Yes (Other)
  Sender: FDA-Public Use
  Company Number: US-PFIZER INC-2011019941

PATIENT
  Sex: Male

DRUGS (2)
  1. GABAPENTIN [Suspect]
     Dosage: UNK
     Route: 048
  2. ORAP [Suspect]
     Dosage: UNK

REACTIONS (3)
  - HEADACHE [None]
  - TARDIVE DYSKINESIA [None]
  - TREMOR [None]
